FAERS Safety Report 9080447 (Version 1)
Quarter: 2013Q1

REPORT INFORMATION
  Report Type: Spontaneous
  Country: PR (occurrence: PR)
  Receive Date: 20130130
  Receipt Date: 20130130
  Transmission Date: 20140127
  Serious: No
  Sender: FDA-Public Use
  Company Number: PR-ABBOTT-12P-131-0968748-00

PATIENT
  Sex: Female
  Weight: 66.28 kg

DRUGS (7)
  1. HUMIRA 40 MG/ 0.8 ML PRE-FILLED SYRINGE [Suspect]
     Indication: RHEUMATOID ARTHRITIS
     Dosage: EVERY 15 DAYS
     Route: 058
     Dates: end: 201204
  2. OTHER DRUGS USED IN DIABETES [Concomitant]
     Indication: DIABETES MELLITUS
     Dosage: 1 TABLET DAILY
     Route: 048
  3. OTHER DRUGS USED IN DIABETES [Concomitant]
     Indication: DYSPEPSIA
  4. OTHER DRUGS USED IN DIABETES [Concomitant]
     Indication: RHEUMATOID ARTHRITIS
  5. LOPRESSOR [Concomitant]
     Indication: HYPERTENSION
     Route: 048
  6. OTHER DRUGS FOR ACID RELATED DISORDERS [Concomitant]
     Indication: DYSPEPSIA
     Route: 048
  7. OTHER ANTIINFLAMMATORY/ANTIRHEUMATIC AGENTS I [Concomitant]
     Indication: RHEUMATOID ARTHRITIS
     Route: 048

REACTIONS (1)
  - Drug ineffective [Recovered/Resolved]
